FAERS Safety Report 7347734-7 (Version None)
Quarter: 2011Q1

REPORT INFORMATION
  Report Type: 
  Country: None (occurrence: None)
  Receive Date: 20110311
  Receipt Date: 20110303
  Transmission Date: 20110831
  Serious: Yes (Other)
  Sender: FDA-Public Use
  Company Number: A0916776A

PATIENT

DRUGS (1)
  1. ARZERRA [Suspect]
     Route: 042

REACTIONS (1)
  - PANCYTOPENIA [None]
